FAERS Safety Report 7445136-6 (Version None)
Quarter: 2011Q2

REPORT INFORMATION
  Report Type: 
  Country: None (occurrence: None)
  Receive Date: 20110429
  Receipt Date: 20110426
  Transmission Date: 20111010
  Serious: Yes (Other)
  Sender: FDA-Public Use
  Company Number: US-PFIZER INC-2011031579

PATIENT
  Sex: Female
  Weight: 83.9 kg

DRUGS (3)
  1. EFFEXOR [Concomitant]
     Dosage: UNK
  2. CHANTIX [Suspect]
     Dosage: 1 MG, 2X/DAY
     Route: 048
     Dates: start: 20110202, end: 20110204
  3. CHANTIX [Suspect]
     Indication: SMOKING CESSATION THERAPY
     Dosage: 0.5 MG, 1X/DAY
     Route: 048
     Dates: start: 20110101, end: 20110101

REACTIONS (3)
  - OROPHARYNGEAL DISCOMFORT [None]
  - SWELLING FACE [None]
  - HYPERSENSITIVITY [None]
